FAERS Safety Report 11556905 (Version 1)
Quarter: 2015Q3

REPORT INFORMATION
  Report Type: Spontaneous
  Country: US (occurrence: US)
  Receive Date: 20150916
  Receipt Date: 20150916
  Transmission Date: 20151125
  Serious: No
  Sender: FDA-Public Use
  Company Number: US-ELI_LILLY_AND_COMPANY-US200806003678

PATIENT
  Age: 65 Year
  Sex: Female

DRUGS (1)
  1. FORTEO [Suspect]
     Active Substance: TERIPARATIDE
     Dates: end: 200806

REACTIONS (6)
  - Discomfort [Unknown]
  - Feeling abnormal [Unknown]
  - Fear [Unknown]
  - Nervousness [Unknown]
  - Fear of injection [Unknown]
  - Anger [Unknown]

NARRATIVE: CASE EVENT DATE: 200806
